FAERS Safety Report 21817385 (Version 3)
Quarter: 2023Q1

REPORT INFORMATION
  Report Type: Spontaneous
  Country: AR (occurrence: AR)
  Receive Date: 20230104
  Receipt Date: 20230221
  Transmission Date: 20230417
  Serious: Yes (Other)
  Sender: FDA-Public Use
  Company Number: AR-BAYER-2022P034394

PATIENT

DRUGS (2)
  1. BETAFERON [Suspect]
     Active Substance: INTERFERON BETA-1B
     Dosage: UNK
     Dates: start: 2015
  2. DEVICE [Suspect]
     Active Substance: DEVICE
     Dosage: UNK
     Dates: start: 2015

REACTIONS (7)
  - Multiple sclerosis relapse [None]
  - Illness [None]
  - Device operational issue [None]
  - Device power source issue [None]
  - Pain [None]
  - Injury [None]
  - Discomfort [None]
